FAERS Safety Report 8941808 (Version 2)
Quarter: 2013Q2

REPORT INFORMATION
  Report Type: Spontaneous
  Country: US (occurrence: US)
  Receive Date: 20121203
  Receipt Date: 20130515
  Transmission Date: 20140414
  Serious: No
  Sender: FDA-Public Use
  Company Number: US-B.I. PHARMACEUTICALS,INC./RIDGEFIELD-2012-BI-01843BP

PATIENT
  Age: 53 Year
  Sex: Female
  Weight: 66 kg

DRUGS (4)
  1. SPIRIVA [Suspect]
     Indication: EMPHYSEMA
     Dosage: 18 MCG
     Route: 055
     Dates: start: 20121112
  2. SPIRIVA [Suspect]
     Route: 055
     Dates: start: 201107
  3. ALBUTEROL [Concomitant]
     Indication: DYSPNOEA
     Route: 055
  4. ADVAIR [Concomitant]
     Indication: DYSPNOEA
     Route: 055

REACTIONS (7)
  - Dyspnoea [Not Recovered/Not Resolved]
  - Dyspnoea [Not Recovered/Not Resolved]
  - Product quality issue [Unknown]
  - Product quality issue [Unknown]
  - Diabetes mellitus [Unknown]
  - Thyroid neoplasm [Unknown]
  - Amnesia [Unknown]
